FAERS Safety Report 12478785 (Version 1)
Quarter: 2016Q2

REPORT INFORMATION
  Report Type: Spontaneous
  Country: US (occurrence: US)
  Receive Date: 20160619
  Receipt Date: 20160619
  Transmission Date: 20160815
  Serious: No
  Sender: FDA-Public Use
  Company Number: US-ASTRAZENECA-2016SE59727

PATIENT
  Age: 53 Year
  Sex: Male

DRUGS (1)
  1. BRILINTA [Suspect]
     Active Substance: TICAGRELOR
     Dosage: UNKNOWN
     Route: 048
     Dates: start: 2016, end: 2016

REACTIONS (5)
  - Pain in extremity [Unknown]
  - Crying [Unknown]
  - Anxiety [Unknown]
  - Dyspnoea [Unknown]
  - Emotional disorder [Unknown]
